FAERS Safety Report 11269514 (Version 1)
Quarter: 2015Q3

REPORT INFORMATION
  Report Type: Spontaneous
  Country: US (occurrence: None)
  Receive Date: 20150713
  Receipt Date: 20150713
  Transmission Date: 20151125
  Serious: No
  Sender: FDA-Public Use
  Company Number: None

PATIENT
  Age: 82 Year
  Sex: Male
  Weight: 62.6 kg

DRUGS (1)
  1. ALBUTEROL/IPRATROPIUM [Suspect]
     Active Substance: ALBUTEROL\IPRATROPIUM
     Route: 055
     Dates: start: 20140904, end: 20140905

REACTIONS (1)
  - Angioedema [None]

NARRATIVE: CASE EVENT DATE: 20140905
